FAERS Safety Report 6706778-6 (Version None)
Quarter: 2010Q2

REPORT INFORMATION
  Report Type: 
  Country: None (occurrence: None)
  Receive Date: 20100503
  Receipt Date: 20100422
  Transmission Date: 20101027
  Serious: Yes (Hospitalization)
  Sender: FDA-Public Use
  Company Number: US-JNJFOC-20100407000

PATIENT
  Sex: Female
  Weight: 78.02 kg

DRUGS (1)
  1. REMICADE [Suspect]
     Indication: RHEUMATOID ARTHRITIS
     Dosage: DOSE: ^4 VIALS^
     Route: 042

REACTIONS (6)
  - CEREBROVASCULAR ACCIDENT [None]
  - EYELID PTOSIS [None]
  - FACIAL PALSY [None]
  - HEART RATE INCREASED [None]
  - SWOLLEN TONGUE [None]
  - THROAT TIGHTNESS [None]
